FAERS Safety Report 20425800 (Version 1)
Quarter: 2022Q1

REPORT INFORMATION
  Report Type: Report from Study
  Country: US (occurrence: US)
  Receive Date: 20220204
  Receipt Date: 20220204
  Transmission Date: 20220424
  Serious: No
  Sender: FDA-Public Use
  Company Number: US-EXELIXIS-CABO-21040029

PATIENT
  Age: 59 Year
  Sex: Male

DRUGS (1)
  1. CABOMETYX [Suspect]
     Active Substance: CABOZANTINIB S-MALATE
     Indication: Colon cancer
     Dosage: 40 MG, QD
     Dates: start: 20210406

REACTIONS (7)
  - Tenderness [Unknown]
  - Erythema [Unknown]
  - Oral pain [Unknown]
  - Fatigue [Unknown]
  - Blood pressure systolic increased [Unknown]
  - Drug ineffective [Unknown]
  - Off label use [Unknown]

NARRATIVE: CASE EVENT DATE: 20210401
